FAERS Safety Report 5176621-8 (Version None)
Quarter: 2006Q4

REPORT INFORMATION
  Report Type: 
  Country: None (occurrence: None)
  Receive Date: 20061207
  Receipt Date: 20061130
  Transmission Date: 20070319
  Serious: Yes (Other)
  Sender: FDA-Public Use
  Company Number: 2006135474

PATIENT
  Age: 26 Year
  Sex: Female

DRUGS (2)
  1. ATARAX [Suspect]
     Indication: RHINITIS ALLERGIC
     Dosage: ORAL
     Route: 048
     Dates: start: 20060901, end: 20061001
  2. CELTECT (OXATOMIDE) [Concomitant]

REACTIONS (4)
  - HEPATIC FUNCTION ABNORMAL [None]
  - LIVER DISORDER [None]
  - MALAISE [None]
  - TRANSAMINASES INCREASED [None]
